FAERS Safety Report 14027538 (Version 1)
Quarter: 2017Q3

REPORT INFORMATION
  Report Type: Spontaneous
  Country: PT (occurrence: PT)
  Receive Date: 20170929
  Receipt Date: 20170929
  Transmission Date: 20171128
  Serious: Yes (Other)
  Sender: FDA-Public Use
  Company Number: PT-ROCHE-2000093

PATIENT
  Age: 11 Year
  Sex: Female

DRUGS (5)
  1. CEFTRIAXONE. [Suspect]
     Active Substance: CEFTRIAXONE
     Indication: SUBDURAL EMPYEMA
     Route: 065
  2. CEFTRIAXONE. [Suspect]
     Active Substance: CEFTRIAXONE
     Indication: SINUSITIS
  3. AMPICILLIN [Suspect]
     Active Substance: AMPICILLIN
     Indication: SUBDURAL EMPYEMA
  4. AMPICILLIN [Suspect]
     Active Substance: AMPICILLIN
     Indication: SINUSITIS
     Route: 065
  5. MEROPENEM. [Concomitant]
     Active Substance: MEROPENEM

REACTIONS (4)
  - Type IV hypersensitivity reaction [Unknown]
  - Lip oedema [Unknown]
  - Rash maculo-papular [Unknown]
  - Rash pruritic [Unknown]
